FAERS Safety Report 11135530 (Version 1)
Quarter: 2015Q2

REPORT INFORMATION
  Report Type: Spontaneous
  Country: US (occurrence: None)
  Receive Date: 20150522
  Receipt Date: 20150522
  Transmission Date: 20150821
  Serious: No
  Sender: FDA-Public Use
  Company Number: None

PATIENT
  Age: 54 Year
  Sex: Female
  Weight: 108.86 kg

DRUGS (17)
  1. LYRICA [Concomitant]
     Active Substance: PREGABALIN
  2. PANTOPRAZOLE [Concomitant]
     Active Substance: PANTOPRAZOLE SODIUM
  3. VITAMIN D [Concomitant]
     Active Substance: CHOLECALCIFEROL
  4. TRAMADOL [Concomitant]
     Active Substance: TRAMADOL
  5. TECFIDERA [Concomitant]
     Active Substance: DIMETHYL FUMARATE
  6. METHOTREXATE [Concomitant]
     Active Substance: METHOTREXATE
  7. LISINOPRIL. [Concomitant]
     Active Substance: LISINOPRIL
  8. PRAVASTATIN [Concomitant]
     Active Substance: PRAVASTATIN\PRAVASTATIN SODIUM
  9. NUVIGIL [Concomitant]
     Active Substance: ARMODAFINIL
  10. TECFIDERA [Suspect]
     Active Substance: DIMETHYL FUMARATE
     Dosage: 1 PILL 2X DAILLY, 12 HRS APART?TWICE DAILY?TAKEN BY MOUTH
     Route: 048
     Dates: start: 20150422, end: 20150521
  11. ALLEGRA [Concomitant]
     Active Substance: FEXOFENADINE HYDROCHLORIDE
  12. RITUXAN [Concomitant]
     Active Substance: RITUXIMAB
  13. JANUVIA [Concomitant]
     Active Substance: SITAGLIPTIN PHOSPHATE
  14. ACTOS [Concomitant]
     Active Substance: PIOGLITAZONE HYDROCHLORIDE
  15. CITALOPRAM [Concomitant]
     Active Substance: CITALOPRAM HYDROBROMIDE
  16. FISH OIL [Concomitant]
     Active Substance: FISH OIL
  17. VITAMINS [Concomitant]
     Active Substance: VITAMINS

REACTIONS (7)
  - Nausea [None]
  - Feeling hot [None]
  - Erythema [None]
  - Pruritus [None]
  - Headache [None]
  - Swelling [None]
  - Rash [None]

NARRATIVE: CASE EVENT DATE: 20150521
